FAERS Safety Report 7509339-4 (Version None)
Quarter: 2011Q2

REPORT INFORMATION
  Report Type: 
  Country: None (occurrence: None)
  Receive Date: 20110527
  Receipt Date: 20110517
  Transmission Date: 20111010
  Serious: Yes (Other)
  Sender: FDA-Public Use
  Company Number: PHHY2011AU38076

PATIENT
  Sex: Female

DRUGS (3)
  1. FAMVIR [Suspect]
     Indication: ORAL HERPES
     Dosage: 3 DF (3 TABLETS) ONCE ONLY
     Route: 048
     Dates: start: 20110427, end: 20110427
  2. SERETIDE MITE [Concomitant]
     Indication: ASTHMA
     Dosage: 2 PUFFS TWICE DAILY
  3. VENTOLIN [Concomitant]
     Indication: ASTHMA
     Dosage: 2 PUFFS FOUR TIMES

REACTIONS (3)
  - RASH [None]
  - LIP SWELLING [None]
  - ACNE [None]
